FAERS Safety Report 7675478-0 (Version None)
Quarter: 2011Q3

REPORT INFORMATION
  Report Type: 
  Country: None (occurrence: None)
  Receive Date: 20110810
  Receipt Date: 20110805
  Transmission Date: 20111222
  Serious: Yes (Death)
  Sender: FDA-Public Use
  Company Number: JP-BRACCO-005107

PATIENT
  Age: 83 Year
  Sex: Male

DRUGS (2)
  1. IOPAMIDOL [Suspect]
     Indication: STENT PLACEMENT
     Dosage: 25 TO 26 ML
     Route: 042
     Dates: start: 20110804, end: 20110804
  2. IOPAMIDOL [Suspect]
     Indication: CATHETERISATION CARDIAC
     Dosage: 25 TO 26 ML
     Route: 042
     Dates: start: 20110804, end: 20110804

REACTIONS (1)
  - SHOCK [None]
